FAERS Safety Report 6151230-2 (Version None)
Quarter: 2009Q2

REPORT INFORMATION
  Report Type: 
  Country: None (occurrence: None)
  Receive Date: 20090410
  Receipt Date: 20090408
  Transmission Date: 20091009
  Serious: Yes (Hospitalization)
  Sender: FDA-Public Use
  Company Number: ZA-BRISTOL-MYERS SQUIBB COMPANY-14579957

PATIENT
  Age: 55 Year
  Sex: Female

DRUGS (2)
  1. MOLIPAXIN TABS [Suspect]
     Indication: MAJOR DEPRESSION
     Dosage: MOLIPAXIN TABS 100MG
     Route: 048
     Dates: start: 20080312, end: 20080318
  2. CYMBALTA [Concomitant]
     Dates: start: 20041201, end: 20080318

REACTIONS (1)
  - STEVENS-JOHNSON SYNDROME [None]
